FAERS Safety Report 4878025-1 (Version None)
Quarter: 2006Q1

REPORT INFORMATION
  Report Type: 
  Country: None (occurrence: None)
  Receive Date: 20060111
  Receipt Date: 20060102
  Transmission Date: 20060701
  Serious: Yes (Death)
  Sender: FDA-Public Use
  Company Number: 2006AC00007

PATIENT
  Age: 10661 Day
  Sex: Male

DRUGS (6)
  1. SEROQUEL [Suspect]
     Indication: SCHIZOPHRENIA
     Route: 048
     Dates: start: 20050816
  2. FLUANXOL [Concomitant]
     Indication: SCHIZOPHRENIA
     Route: 048
     Dates: end: 20051225
  3. SIPRALEXA [Concomitant]
     Indication: DEPRESSION
     Route: 048
     Dates: start: 20051219, end: 20051225
  4. TRAZOLAM [Concomitant]
     Indication: DEPRESSION
     Route: 048
     Dates: start: 20051219, end: 20051225
  5. TRAZOLAM [Concomitant]
     Indication: ANXIETY
     Route: 048
     Dates: start: 20051219, end: 20051225
  6. STAURODORM [Concomitant]
     Indication: INSOMNIA
     Route: 048
     Dates: start: 20051212, end: 20051225

REACTIONS (2)
  - CARBON MONOXIDE POISONING [None]
  - COMPLETED SUICIDE [None]
